FAERS Safety Report 11472198 (Version 1)
Quarter: 2015Q3

REPORT INFORMATION
  Report Type: Spontaneous
  Country: US (occurrence: US)
  Receive Date: 20150908
  Receipt Date: 20150908
  Transmission Date: 20151125
  Serious: Yes (Other)
  Sender: FDA-Public Use
  Company Number: US-SA-2015SA069379

PATIENT
  Age: 53 Year
  Sex: Male

DRUGS (3)
  1. TOUJEO [Suspect]
     Active Substance: INSULIN GLARGINE
     Dosage: DOSE:16 UNIT(S)
     Route: 058
     Dates: start: 20150421, end: 20150506
  2. SOLOSTAR [Concomitant]
     Active Substance: DEVICE
     Dates: start: 20150421, end: 20150506
  3. LANTUS [Concomitant]
     Active Substance: INSULIN GLARGINE

REACTIONS (1)
  - Blood glucose increased [Unknown]
